FAERS Safety Report 16996811 (Version 1)
Quarter: 2019Q4

REPORT INFORMATION
  Report Type: Spontaneous
  Country: US (occurrence: US)
  Receive Date: 20191105
  Receipt Date: 20191105
  Transmission Date: 20200122
  Serious: No
  Sender: FDA-Public Use
  Company Number: US-RADIUS HEALTH INC.-2019US002839

PATIENT
  Age: 64 Year
  Sex: Female

DRUGS (3)
  1. TYMLOS [Suspect]
     Active Substance: ABALOPARATIDE
     Dosage: A COUPLE TIMES A WEEK
  2. TYMLOS [Suspect]
     Active Substance: ABALOPARATIDE
     Dosage: WEEKLY
  3. TYMLOS [Suspect]
     Active Substance: ABALOPARATIDE
     Indication: OSTEOPOROSIS POSTMENOPAUSAL
     Dosage: UNK
     Route: 058
     Dates: start: 201712

REACTIONS (6)
  - Hand fracture [Recovering/Resolving]
  - Injection site bruising [Recovered/Resolved]
  - Vertigo [Unknown]
  - Inappropriate schedule of product administration [Unknown]
  - Fall [Unknown]
  - Dizziness [Unknown]

NARRATIVE: CASE EVENT DATE: 20190331
